FAERS Safety Report 25207689 (Version 2)
Quarter: 2025Q3

REPORT INFORMATION
  Report Type: Report from Study
  Country: US (occurrence: US)
  Receive Date: 20250417
  Receipt Date: 20250709
  Transmission Date: 20251021
  Serious: Yes (Other)
  Sender: RANBAXY
  Company Number: US-SUN PHARMACEUTICAL INDUSTRIES LTD-2025R1-504006

PATIENT
  Age: 48 Year
  Sex: Female

DRUGS (2)
  1. HYDROXYCHLOROQUINE [Suspect]
     Active Substance: HYDROXYCHLOROQUINE
     Indication: Systemic lupus erythematosus
     Dosage: 400 MILLIGRAM, DAILY
     Route: 065
  2. PENTOSAN POLYSULFATE [Suspect]
     Active Substance: PENTOSAN POLYSULFATE
     Indication: Product used for unknown indication
     Route: 065

REACTIONS (1)
  - Maculopathy [Unknown]
